FAERS Safety Report 5567328-3 (Version None)
Quarter: 2007Q4

REPORT INFORMATION
  Report Type: 
  Country: None (occurrence: None)
  Receive Date: 20071219
  Receipt Date: 20070801
  Transmission Date: 20080405
  Serious: No
  Sender: FDA-Public Use
  Company Number: US-ABBOTT-07P-163-0376452-00

PATIENT
  Sex: Female
  Weight: 88.984 kg

DRUGS (3)
  1. DILAUDID [Suspect]
     Indication: ABDOMINAL PAIN
     Route: 048
     Dates: start: 20070201, end: 20070201
  2. WARFARIN SODIUM [Concomitant]
     Indication: DEEP VEIN THROMBOSIS
     Route: 048
  3. AMITRIPTLINE HCL [Concomitant]
     Indication: DRUG USE FOR UNKNOWN INDICATION
     Route: 048

REACTIONS (1)
  - NAUSEA [None]
